FAERS Safety Report 22314907 (Version 3)
Quarter: 2023Q4

REPORT INFORMATION
  Report Type: Report from Study
  Country: CN (occurrence: CN)
  Receive Date: 20230512
  Receipt Date: 20231114
  Transmission Date: 20240109
  Serious: Yes (Hospitalization)
  Sender: FDA-Public Use
  Company Number: CN-ABBVIE-4757411

PATIENT
  Age: 35 Year
  Sex: Male
  Weight: 61.3 kg

DRUGS (8)
  1. VENETOCLAX [Suspect]
     Active Substance: VENETOCLAX
     Indication: Acute myeloid leukaemia
     Route: 048
     Dates: start: 20230213, end: 20230403
  2. AZACITIDINE [Suspect]
     Active Substance: AZACITIDINE
     Indication: Acute myeloid leukaemia
     Dosage: DAYS 1-5 OF EACH 28 DAY CYCLE
     Route: 058
     Dates: start: 20230213, end: 20230325
  3. SULFAMETHOXAZOLE [Concomitant]
     Active Substance: SULFAMETHOXAZOLE
     Indication: Antifungal prophylaxis
     Route: 048
     Dates: start: 20221214, end: 20230505
  4. COMBINED CLOSTRIDIUM BUTYRICUM AND BIFIDOBACTERIUM [Concomitant]
     Indication: Probiotic therapy
     Dosage: TIME INTERVAL: AS NECESSARY
     Route: 048
     Dates: start: 20230220, end: 20230505
  5. LEUCOGEN [Concomitant]
     Active Substance: LEUCOGEN
     Indication: Platelet count decreased
     Route: 048
     Dates: start: 20230323, end: 20230505
  6. ACYCLOVIR [Concomitant]
     Active Substance: ACYCLOVIR
     Indication: Viral infection
     Route: 048
     Dates: start: 20230105, end: 20230505
  7. CYCLOSPORINE [Concomitant]
     Active Substance: CYCLOSPORINE
     Indication: Immunosuppression
     Route: 048
     Dates: start: 20230412, end: 20230505
  8. HEROMBOPAG OLAMINE [Concomitant]
     Indication: Hypercoagulation
     Route: 048
     Dates: start: 20230426, end: 20230505

REACTIONS (1)
  - Platelet count decreased [Not Recovered/Not Resolved]

NARRATIVE: CASE EVENT DATE: 20230501
